FAERS Safety Report 23763514 (Version 1)
Quarter: 2024Q2

REPORT INFORMATION
  Report Type: Spontaneous
  Country: FR (occurrence: FR)
  Receive Date: 20240419
  Receipt Date: 20240419
  Transmission Date: 20240716
  Serious: Yes (Death, Life-Threatening, Hospitalization, Other)
  Sender: FDA-Public Use
  Company Number: None

PATIENT
  Age: 49 Year
  Sex: Male
  Weight: 58 kg

DRUGS (9)
  1. BACTRIM [Suspect]
     Active Substance: SULFAMETHOXAZOLE\TRIMETHOPRIM
     Indication: Infection
     Dosage: 1 DOSAGE FORM, QW (1 CP/JOUR)
     Route: 048
     Dates: start: 20220526, end: 20220706
  2. CIPROFLOXACIN [Suspect]
     Active Substance: CIPROFLOXACIN
     Indication: Urinary tract infection
     Dosage: 500 MG, Q12H (500 MGX2/JOUR)
     Route: 048
     Dates: start: 20220627, end: 20220706
  3. CIPROFLOXACIN [Suspect]
     Active Substance: CIPROFLOXACIN
     Indication: Urinary tract infection
     Dosage: 1000 MG, QD (500 MG, TWICE DAILY)
     Route: 065
     Dates: start: 20220527, end: 20220706
  4. POTELIGEO [Suspect]
     Active Substance: MOGAMULIZUMAB-KPKC
     Indication: Cutaneous T-cell lymphoma
     Dosage: UNK
     Route: 042
     Dates: start: 20220525, end: 20220630
  5. TIAPRIDE HYDROCHLORIDE [Suspect]
     Active Substance: TIAPRIDE HYDROCHLORIDE
     Indication: Agitation
     Dosage: 25 MG (25 MG LE SOIR SI BESOIN)
     Route: 065
     Dates: start: 20220525, end: 20220706
  6. TIAPRIDE HYDROCHLORIDE [Suspect]
     Active Substance: TIAPRIDE HYDROCHLORIDE
     Dosage: 25 MG, QD
     Route: 065
     Dates: start: 20220525, end: 20220707
  7. VALACYCLOVIR HYDROCHLORIDE [Suspect]
     Active Substance: VALACYCLOVIR HYDROCHLORIDE
     Indication: Dermatitis exfoliative generalised
     Dosage: UNK
     Route: 065
  8. VALACYCLOVIR HYDROCHLORIDE [Suspect]
     Active Substance: VALACYCLOVIR HYDROCHLORIDE
     Indication: Eczema herpeticum
     Dosage: 500 MG, QD
     Route: 048
     Dates: start: 20220526, end: 20220706
  9. ZOPICLONE [Concomitant]
     Active Substance: ZOPICLONE
     Indication: Product used for unknown indication
     Dosage: 7.5 MG, QD, 0.25 TABLETS DAILY
     Route: 065
     Dates: start: 20220525, end: 20220707

REACTIONS (2)
  - Toxic epidermal necrolysis [Fatal]
  - Infection [Fatal]

NARRATIVE: CASE EVENT DATE: 20220703
